FAERS Safety Report 16650638 (Version 1)
Quarter: 2019Q3

REPORT INFORMATION
  Report Type: Spontaneous
  Country: DE (occurrence: DE)
  Receive Date: 20190731
  Receipt Date: 20190731
  Transmission Date: 20191004
  Serious: Yes (Other)
  Sender: FDA-Public Use
  Company Number: DE-AUROBINDO-AUR-APL-2019-044217

PATIENT

DRUGS (5)
  1. ALENDRONIC ACID TABLETS [Suspect]
     Active Substance: ALENDRONIC ACID
     Indication: PRODUCT USED FOR UNKNOWN INDICATION
     Dosage: 2 TABLET, 70MG
     Route: 048
  2. DEKRISTOL [Suspect]
     Active Substance: CHOLECALCIFEROL
     Indication: PRODUCT USED FOR UNKNOWN INDICATION
     Dosage: UNK
     Route: 048
  3. LEVOTHYROXINE SODIUM. [Suspect]
     Active Substance: LEVOTHYROXINE SODIUM
     Indication: PRODUCT USED FOR UNKNOWN INDICATION
     Dosage: 20 TABLET, TOTAL 0.1MG
     Route: 048
  4. WICK MEDINAIT (DEXTROMETHORPHAN HYDROBROMIDE\DOXYLAMINE SUCCINATE\EPHEDRINE SULFATE\PARACETAMOL) [Suspect]
     Active Substance: ACETAMINOPHEN\DEXTROMETHORPHAN HYDROBROMIDE\DOXYLAMINE\EPHEDRINE SULFATE
     Indication: PRODUCT USED FOR UNKNOWN INDICATION
     Dosage: 125-150 MILLILITER
     Route: 048
  5. GASTROVEGETALIN [Suspect]
     Active Substance: HERBALS\MELISSA OFFICINALIS
     Indication: PRODUCT USED FOR UNKNOWN INDICATION
     Dosage: 8 TABLET
     Route: 048

REACTIONS (6)
  - Incorrect dose administered [Unknown]
  - Suicide attempt [Unknown]
  - Intentional overdose [Unknown]
  - Somnolence [Unknown]
  - Blood pressure increased [Unknown]
  - Intentional product use issue [Unknown]
